FAERS Safety Report 17137843 (Version 11)
Quarter: 2021Q1

REPORT INFORMATION
  Report Type: Report from Study
  Country: None (occurrence: NL)
  Receive Date: 20191211
  Receipt Date: 20210121
  Transmission Date: 20210419
  Serious: Yes (Hospitalization, Other)
  Sender: FDA-Public Use
  Company Number: NL-ABBVIE-19S-114-2690619-00

PATIENT
  Age: 79 Year
  Sex: Female
  Weight: 66 kg

DRUGS (11)
  1. DUODOPA [Suspect]
     Active Substance: CARBIDOPA\LEVODOPA
     Dosage: MD 10.0 CD 3.1 ED 1.0 REMAINS AT 16 HOURS, 08:00AM TO 22:00PM
     Route: 050
  2. DUODOPA [Suspect]
     Active Substance: CARBIDOPA\LEVODOPA
     Dosage: MD: 7.5 ML, CD: 3.1 ML/H, ED: 1.0 ML
     Route: 050
  3. LEVODOPA/CARBIDOPA [Concomitant]
     Active Substance: CARBIDOPA\LEVODOPA
     Indication: PARKINSON^S DISEASE
     Dosage: 2 TABLET 250 MILLIGRAM RET
     Route: 065
  4. MOVICOLON [Concomitant]
     Active Substance: POLYETHYLENE GLYCOL 3350\POTASSIUM CHLORIDE\SODIUM BICARBONATE\SODIUM CHLORIDE
     Indication: ABNORMAL FAECES
  5. DUODOPA [Suspect]
     Active Substance: CARBIDOPA\LEVODOPA
     Dosage: MD 8.0ML CD 3.1ML/H ED 1.0ML,
     Route: 050
  6. DUODOPA [Suspect]
     Active Substance: CARBIDOPA\LEVODOPA
     Indication: PARKINSON^S DISEASE
     Dosage: MD: 10.0, CD: 3.1, ED: 1.0 16 HR ADMINISTRATION ED 1?2 TIMES DAILY
     Route: 050
     Dates: start: 20190110
  7. CLOZAPINE. [Concomitant]
     Active Substance: CLOZAPINE
     Indication: ABNORMAL DREAMS
  8. 3M CAVILON ANTIFUNGAL [Concomitant]
     Active Substance: MICONAZOLE NITRATE
     Indication: PRODUCT USED FOR UNKNOWN INDICATION
  9. CLOZAPINE. [Concomitant]
     Active Substance: CLOZAPINE
     Indication: HALLUCINATION
  10. FLORINEF ACETATE [Concomitant]
     Active Substance: FLUDROCORTISONE ACETATE
     Indication: BLOOD PRESSURE DECREASED
     Route: 065
  11. RIVOTRIL [Concomitant]
     Active Substance: CLONAZEPAM
     Indication: RESTLESSNESS
     Dosage: 22 TABLETS AT 22:00
     Route: 048
     Dates: start: 20191201

REACTIONS (57)
  - Stress [Not Recovered/Not Resolved]
  - Malaise [Not Recovered/Not Resolved]
  - Restlessness [Not Recovered/Not Resolved]
  - Insomnia [Not Recovered/Not Resolved]
  - Parkinson^s disease [Not Recovered/Not Resolved]
  - Wheelchair user [Not Recovered/Not Resolved]
  - Memory impairment [Unknown]
  - Hallucination, visual [Not Recovered/Not Resolved]
  - Dyskinesia [Recovered/Resolved]
  - Bradykinesia [Not Recovered/Not Resolved]
  - Freezing phenomenon [Not Recovered/Not Resolved]
  - Memory impairment [Not Recovered/Not Resolved]
  - Stoma site erythema [Recovered/Resolved]
  - Device difficult to use [Unknown]
  - Pollakiuria [Not Recovered/Not Resolved]
  - Hypophagia [Recovered/Resolved]
  - Dyschezia [Not Recovered/Not Resolved]
  - Malaise [Recovered/Resolved]
  - Dementia [Not Recovered/Not Resolved]
  - Syncope [Recovering/Resolving]
  - Dyskinesia [Unknown]
  - Device placement issue [Unknown]
  - Cataract [Not Recovered/Not Resolved]
  - Bradyphrenia [Not Recovered/Not Resolved]
  - Cognitive disorder [Not Recovered/Not Resolved]
  - Nightmare [Unknown]
  - Hypotension [Recovering/Resolving]
  - Confusional state [Not Recovered/Not Resolved]
  - Faeces hard [Recovered/Resolved]
  - Sluggishness [Not Recovered/Not Resolved]
  - Obsessive-compulsive disorder [Unknown]
  - Fall [Not Recovered/Not Resolved]
  - Anaemia [Not Recovered/Not Resolved]
  - Constipation [Not Recovered/Not Resolved]
  - Unevaluable event [Unknown]
  - Tension [Not Recovered/Not Resolved]
  - Appetite disorder [Recovered/Resolved]
  - Eating disorder [Not Recovered/Not Resolved]
  - Chorea [Not Recovered/Not Resolved]
  - Cognitive disorder [Unknown]
  - Abnormal dreams [Not Recovered/Not Resolved]
  - Weight decreased [Unknown]
  - On and off phenomenon [Recovered/Resolved]
  - Weight decreased [Not Recovered/Not Resolved]
  - Gait disturbance [Not Recovered/Not Resolved]
  - Hallucination [Not Recovered/Not Resolved]
  - Stoma site discharge [Not Recovered/Not Resolved]
  - Dyskinesia [Not Recovered/Not Resolved]
  - Unevaluable event [Not Recovered/Not Resolved]
  - Freezing phenomenon [Unknown]
  - Hospitalisation [Recovered/Resolved]
  - Loss of personal independence in daily activities [Not Recovered/Not Resolved]
  - Apathy [Not Recovered/Not Resolved]
  - Syncope [Not Recovered/Not Resolved]
  - Fatigue [Not Recovered/Not Resolved]
  - Orthostatic hypotension [Recovering/Resolving]
  - Stoma site erythema [Not Recovered/Not Resolved]

NARRATIVE: CASE EVENT DATE: 2019
